FAERS Safety Report 7893050-4 (Version None)
Quarter: 2011Q4

REPORT INFORMATION
  Report Type: 
  Country: None (occurrence: None)
  Receive Date: 20111104
  Receipt Date: 20110817
  Transmission Date: 20120403
  Serious: No
  Sender: FDA-Public Use
  Company Number: US-GLAXOSMITHKLINE-A0941725A

PATIENT
  Age: 54 Year
  Sex: Female
  Weight: 69.5 kg

DRUGS (7)
  1. PROPRANOLOL SUSTAINED RELEASE [Concomitant]
  2. VICODIN [Concomitant]
  3. VALIUM [Concomitant]
  4. HORIZANT [Suspect]
     Indication: RESTLESS LEGS SYNDROME
     Dosage: 600MG AT NIGHT
     Route: 048
     Dates: start: 20110805, end: 20110811
  5. COPAXONE [Concomitant]
  6. AMITRIPTYLINE HCL [Concomitant]
  7. CITALOPRAM HYDROBROMIDE [Concomitant]

REACTIONS (4)
  - ANXIETY [None]
  - AGITATION [None]
  - HEADACHE [None]
  - DRUG INEFFECTIVE [None]
